FAERS Safety Report 6611430-1 (Version None)
Quarter: 2010Q1

REPORT INFORMATION
  Report Type: 
  Country: None (occurrence: None)
  Receive Date: 20100218
  Receipt Date: 20100107
  Transmission Date: 20100710
  Serious: No
  Sender: FDA-Public Use
  Company Number: WAES 1001USA00358

PATIENT
  Age: 48 Year
  Sex: Female

DRUGS (3)
  1. ISENTRESS [Suspect]
     Indication: T-LYMPHOCYTE COUNT INCREASED
     Dosage: PO
     Route: 048
     Dates: start: 20091117
  2. KALETRA [Suspect]
     Indication: T-LYMPHOCYTE COUNT INCREASED
     Dosage: 200/50 MG/BID/PO
     Route: 048
     Dates: start: 20091117
  3. MARAVIROC UNK [Suspect]
     Indication: T-LYMPHOCYTE COUNT INCREASED
     Dates: start: 20091117

REACTIONS (4)
  - ASTHENIA [None]
  - HOT FLUSH [None]
  - NAUSEA [None]
  - WEIGHT DECREASED [None]
